FAERS Safety Report 23875545 (Version 1)
Quarter: 2024Q2

REPORT INFORMATION
  Report Type: Spontaneous
  Country: CA (occurrence: CA)
  Receive Date: 20240520
  Receipt Date: 20240520
  Transmission Date: 20240716
  Serious: Yes (Other)
  Sender: FDA-Public Use
  Company Number: CA-SANDOZ-SDZ2024CA049199

PATIENT
  Sex: Female

DRUGS (1)
  1. HYRIMOZ [Suspect]
     Active Substance: ADALIMUMAB-ADAZ
     Indication: Rheumatoid arthritis
     Dosage: 40 MG Q 2 WEEKS;EVERY TWO WEEKS
     Route: 058
     Dates: start: 20210801

REACTIONS (6)
  - Uterine disorder [Unknown]
  - Scoliosis [Unknown]
  - Hormone level abnormal [Unknown]
  - General physical health deterioration [Unknown]
  - Motor dysfunction [Unknown]
  - Osteoarthritis [Unknown]
